FAERS Safety Report 18409964 (Version 1)
Quarter: 2020Q4

REPORT INFORMATION
  Report Type: Spontaneous
  Country: US (occurrence: US)
  Receive Date: 20201021
  Receipt Date: 20201021
  Transmission Date: 20210114
  Serious: Yes (Other)
  Sender: FDA-Public Use
  Company Number: None

PATIENT
  Age: 66 Year
  Sex: Female

DRUGS (1)
  1. CARBAMAZEPINE. [Suspect]
     Active Substance: CARBAMAZEPINE
     Route: 048
     Dates: start: 20200908, end: 20200910

REACTIONS (3)
  - Pyrexia [None]
  - Sedation [None]
  - Unresponsive to stimuli [None]

NARRATIVE: CASE EVENT DATE: 20200910
